FAERS Safety Report 8077948-2 (Version None)
Quarter: 2012Q1

REPORT INFORMATION
  Report Type: 
  Country: None (occurrence: None)
  Receive Date: 20120127
  Receipt Date: 20110105
  Transmission Date: 20120608
  Serious: No
  Sender: FDA-Public Use
  Company Number: US-ABBOTT-11P-163-0695376-00

PATIENT
  Age: 45 Year
  Sex: Female

DRUGS (13)
  1. NEXIUM [Concomitant]
     Indication: GASTROOESOPHAGEAL REFLUX DISEASE
  2. PREDNISONE [Concomitant]
  3. PREDNISONE [Concomitant]
     Indication: RHEUMATOID ARTHRITIS
     Dosage: 5MG ALTERNATE W/2.5 MG FOR 2 WEEKS DECREASING DOSE
  4. PREDNISONE [Concomitant]
     Dosage: ALTERNATE W/5 MG FOR 2 WEEKS
  5. PREDNISONE [Concomitant]
  6. METHOCARBAMOL [Concomitant]
     Indication: MUSCLE RELAXANT THERAPY
  7. HYDROCODONE BITARTRATE AND ACETAMINOPHEN [Concomitant]
     Indication: PAIN
     Dosage: 10/325MG
  8. LORATADINE [Concomitant]
     Indication: HYPERSENSITIVITY
  9. ETODOLAC [Concomitant]
     Indication: PAIN
  10. HYDROCHLOROTHIAZIDE [Concomitant]
     Indication: HYPERTENSION
  11. LISINOPRIL [Concomitant]
     Indication: HYPERTENSION
  12. HUMIRA [Suspect]
     Indication: RHEUMATOID ARTHRITIS
     Dates: start: 20101101
  13. SERTRALINE HYDROCHLORIDE [Concomitant]
     Indication: DEPRESSION

REACTIONS (7)
  - PRODUCTIVE COUGH [None]
  - MALAISE [None]
  - COUGH [None]
  - INCORRECT DOSE ADMINISTERED BY DEVICE [None]
  - RESPIRATORY TRACT CONGESTION [None]
  - PYREXIA [None]
  - DEVICE MALFUNCTION [None]
